FAERS Safety Report 21843911 (Version 1)
Quarter: 2023Q1

REPORT INFORMATION
  Report Type: Spontaneous
  Country: US (occurrence: None)
  Receive Date: 20230109
  Receipt Date: 20230109
  Transmission Date: 20230418
  Serious: Yes (Other)
  Sender: FDA-Public Use
  Company Number: None

PATIENT
  Age: 79 Year
  Sex: Female
  Weight: 64.8 kg

DRUGS (1)
  1. EZETIMIBE [Suspect]
     Active Substance: EZETIMIBE
     Indication: Lipids abnormal
     Dosage: OTHER QUANTITY: 1 TABLET(S)?FREQUENCY: DAILY?
     Route: 048
     Dates: start: 20221117, end: 20221209

REACTIONS (4)
  - Myalgia [None]
  - Groin pain [None]
  - Arthralgia [None]
  - Therapy cessation [None]

NARRATIVE: CASE EVENT DATE: 20221201
